FAERS Safety Report 12745789 (Version 1)
Quarter: 2016Q3

REPORT INFORMATION
  Report Type: Spontaneous
  Country: CH (occurrence: CH)
  Receive Date: 20160915
  Receipt Date: 20160915
  Transmission Date: 20161109
  Serious: Yes (Hospitalization)
  Sender: FDA-Public Use
  Company Number: CH-MEDA-2016090013

PATIENT
  Age: 74 Year
  Sex: Female

DRUGS (9)
  1. COVERSUM COMBI [Suspect]
     Active Substance: INDAPAMIDE
     Dosage: 1/2-0-0
     Route: 048
     Dates: start: 20151202, end: 20160730
  2. ZOLPIDEM [Concomitant]
     Active Substance: ZOLPIDEM\ZOLPIDEM TARTRATE
     Dosage: 0-0-0-1
  3. TEMESTA [Concomitant]
     Active Substance: LORAZEPAM
  4. ACIDUM FOLICUM [Concomitant]
     Active Substance: FOLIC ACID
     Dosage: 1-0-0 (ON THE FIRST OF MONTH)
  5. VITAMIN D3 [Concomitant]
     Active Substance: CHOLECALCIFEROL
     Dosage: 1 BOTTLE/MONTH
  6. TORASEMIDE [Suspect]
     Active Substance: TORSEMIDE
     Route: 048
     Dates: start: 201509, end: 20160730
  7. METOPROLOL. [Concomitant]
     Active Substance: METOPROLOL
     Dosage: 0-0-1
     Dates: start: 201509
  8. LITALIR [Concomitant]
     Active Substance: HYDROXYUREA
     Dosage: 1-0-1
  9. MARCOUMAR 3 MG [Concomitant]
     Active Substance: PHENPROCOUMON
     Dosage: ACCORDING TO INR (TARGET 2-3)

REACTIONS (4)
  - Hypokalaemia [Recovered/Resolved]
  - Metabolic alkalosis [Recovered/Resolved]
  - Hyponatraemia [Recovered/Resolved]
  - Drug interaction [Recovered/Resolved]

NARRATIVE: CASE EVENT DATE: 20160730
